FAERS Safety Report 10608361 (Version 3)
Quarter: 2018Q2

REPORT INFORMATION
  Report Type: Spontaneous
  Country: US (occurrence: US)
  Receive Date: 20141125
  Receipt Date: 20180503
  Transmission Date: 20180711
  Serious: Yes (Other)
  Sender: FDA-Public Use
  Company Number: US-ABBVIE-14P-163-1311320-00

PATIENT
  Sex: Male

DRUGS (2)
  1. ANDROGEL [Suspect]
     Active Substance: TESTOSTERONE
     Indication: ANDROGEN REPLACEMENT THERAPY
  2. ANDROGEL [Suspect]
     Active Substance: TESTOSTERONE
     Indication: BLOOD TESTOSTERONE DECREASED
     Route: 061
     Dates: start: 20100125, end: 20120712

REACTIONS (27)
  - Central nervous system necrosis [Unknown]
  - Angina pectoris [Unknown]
  - Catheterisation cardiac [Unknown]
  - Injury [Unknown]
  - Impaired work ability [Unknown]
  - Cardiovascular disorder [Unknown]
  - Vascular graft [Unknown]
  - Angina pectoris [Unknown]
  - Nausea [Unknown]
  - Angina pectoris [Unknown]
  - Coronary artery bypass [Unknown]
  - Anxiety [Unknown]
  - Chest pain [Unknown]
  - Vascular graft [Unknown]
  - Catheterisation cardiac [Unknown]
  - Dyspnoea [Unknown]
  - Chest discomfort [Unknown]
  - Cerebrovascular accident [Unknown]
  - Lacunar infarction [Unknown]
  - Angina pectoris [Unknown]
  - Catheterisation cardiac [Unknown]
  - Coronary artery occlusion [Unknown]
  - Vascular graft [Unknown]
  - Hyperhidrosis [Unknown]
  - Transient ischaemic attack [Unknown]
  - Cognitive disorder [Unknown]
  - Pain [Unknown]

NARRATIVE: CASE EVENT DATE: 20120314
